FAERS Safety Report 5909666-8 (Version None)
Quarter: 2008Q4

REPORT INFORMATION
  Report Type: 
  Country: None (occurrence: None)
  Receive Date: 20081007
  Receipt Date: 20080926
  Transmission Date: 20090506
  Serious: Yes (Hospitalization)
  Sender: FDA-Public Use
  Company Number: PHHY2008JP18723

PATIENT
  Sex: Female

DRUGS (6)
  1. LAMISIL [Suspect]
     Indication: ONYCHOMYCOSIS
     Dosage: 125 MG PER DAY
     Route: 048
     Dates: start: 20080708, end: 20080817
  2. LAMISIL [Suspect]
     Dosage: 30 MG/DAY
     Dates: start: 20080801
  3. LIVALO [Concomitant]
     Dosage: 1 MG UNK
     Route: 048
  4. CYANOCOBALAMIN [Concomitant]
     Dosage: 1500 UG
     Route: 048
  5. KINEDAK [Concomitant]
     Dosage: 150 MG UNK
     Route: 048
  6. THYRADIN [Concomitant]
     Dosage: UNK
     Route: 048

REACTIONS (4)
  - ACUTE GENERALISED EXANTHEMATOUS PUSTULOSIS [None]
  - DIABETES MELLITUS [None]
  - SUBCORNEAL PUSTULAR DERMATOSIS [None]
  - TOXIC SKIN ERUPTION [None]
